FAERS Safety Report 11625417 (Version 1)
Quarter: 2015Q4

REPORT INFORMATION
  Report Type: Spontaneous
  Country: US (occurrence: US)
  Receive Date: 20151013
  Receipt Date: 20151013
  Transmission Date: 20160304
  Serious: Yes (Death)
  Sender: FDA-Public Use
  Company Number: US-GUERBET LLC-1042877

PATIENT
  Age: 42 Year
  Sex: Female

DRUGS (1)
  1. OXILAN [Suspect]
     Active Substance: IOXILAN
     Indication: COMPUTERISED TOMOGRAM
     Route: 042
     Dates: start: 20020905, end: 20020905

REACTIONS (12)
  - Dizziness [Fatal]
  - Bradycardia [Fatal]
  - Hyporesponsive to stimuli [None]
  - Cardiac arrest [None]
  - Pruritus [None]
  - Dyspnoea [None]
  - Contrast media reaction [None]
  - Cyanosis [Fatal]
  - Hypotension [Fatal]
  - Electrocardiogram abnormal [None]
  - Cardiac disorder [None]
  - Pulmonary embolism [None]

NARRATIVE: CASE EVENT DATE: 20020905
